FAERS Safety Report 11048237 (Version 1)
Quarter: 2015Q2

REPORT INFORMATION
  Report Type: Spontaneous
  Country: US (occurrence: None)
  Receive Date: 20150417
  Receipt Date: 20150417
  Transmission Date: 20150821
  Serious: No
  Sender: FDA-Public Use
  Company Number: None

PATIENT
  Age: 30 Year
  Sex: Male

DRUGS (1)
  1. REBIF [Suspect]
     Active Substance: INTERFERON BETA-1A
     Indication: MULTIPLE SCLEROSIS
     Dosage: 3X/WEEK
     Route: 058
     Dates: start: 20150217, end: 20150416

REACTIONS (3)
  - Asthenia [None]
  - Muscle spasticity [None]
  - Personality disorder [None]

NARRATIVE: CASE EVENT DATE: 20150416
